FAERS Safety Report 17349167 (Version 4)
Quarter: 2021Q2

REPORT INFORMATION
  Report Type: Spontaneous
  Country: US (occurrence: US)
  Receive Date: 20200130
  Receipt Date: 20210628
  Transmission Date: 20210716
  Serious: Yes (Other)
  Sender: FDA-Public Use
  Company Number: US-GILEAD-2020-0448797

PATIENT
  Age: 36 Year
  Sex: Male
  Weight: 79.37 kg

DRUGS (53)
  1. VIREAD [Suspect]
     Active Substance: TENOFOVIR DISOPROXIL FUMARATE
     Dosage: UNK
     Route: 048
     Dates: start: 201302, end: 201708
  2. PREZISTA [Concomitant]
     Active Substance: DARUNAVIR ETHANOLATE
  3. AURYXIA [Concomitant]
     Active Substance: TETRAFERRIC TRICITRATE DECAHYDRATE
  4. ETELCALCETIDE [Concomitant]
     Active Substance: ETELCALCETIDE
  5. LACTULOSE. [Concomitant]
     Active Substance: LACTULOSE
  6. BACTRIM [Concomitant]
     Active Substance: SULFAMETHOXAZOLE\TRIMETHOPRIM
  7. TRIUMEQ [Concomitant]
     Active Substance: ABACAVIR SULFATE\DOLUTEGRAVIR SODIUM\LAMIVUDINE
  8. ZIAGEN [Concomitant]
     Active Substance: ABACAVIR SULFATE
  9. DOXAZOSIN [Concomitant]
     Active Substance: DOXAZOSIN MESYLATE
  10. ACYCLOVIR [ACICLOVIR] [Concomitant]
     Active Substance: ACYCLOVIR
  11. AMPICILLIN [Concomitant]
     Active Substance: AMPICILLIN
  12. VANCOMYCIN [Concomitant]
     Active Substance: VANCOMYCIN
  13. VIREAD [Suspect]
     Active Substance: TENOFOVIR DISOPROXIL FUMARATE
     Dosage: UNK
     Route: 048
     Dates: start: 2008
  14. HYDROCODONE/ACETAMINOPHEN [Concomitant]
     Active Substance: ACETAMINOPHEN\HYDROCODONE
  15. IRON SUCROSE [Concomitant]
     Active Substance: IRON SUCROSE
  16. NIFEDIPINE. [Concomitant]
     Active Substance: NIFEDIPINE
  17. HEPARIN [Concomitant]
     Active Substance: HEPARIN SODIUM
  18. VIREAD [Suspect]
     Active Substance: TENOFOVIR DISOPROXIL FUMARATE
     Dosage: UNK
     Route: 048
     Dates: start: 20170818, end: 20170823
  19. ATRIPLA [Suspect]
     Active Substance: EFAVIRENZ\EMTRICITABINE\TENOFOVIR DISOPROXIL FUMARATE
     Dosage: UNK
     Route: 048
     Dates: start: 2010, end: 2013
  20. TIVICAY [Concomitant]
     Active Substance: DOLUTEGRAVIR SODIUM
  21. DOXYCYCLINE HYCLATE. [Concomitant]
     Active Substance: DOXYCYCLINE HYCLATE
  22. FERROUS SULFATE. [Concomitant]
     Active Substance: FERROUS SULFATE
  23. ATRIPLA [Suspect]
     Active Substance: EFAVIRENZ\EMTRICITABINE\TENOFOVIR DISOPROXIL FUMARATE
     Dosage: UNK
     Route: 048
     Dates: start: 2007, end: 2010
  24. COMBIVIR [Concomitant]
     Active Substance: LAMIVUDINE\ZIDOVUDINE
  25. SUSTIVA [Concomitant]
     Active Substance: EFAVIRENZ
  26. FOSRENOL [Concomitant]
     Active Substance: LANTHANUM CARBONATE
  27. ACETAMINOPHEN. [Concomitant]
     Active Substance: ACETAMINOPHEN
  28. COLACE [Concomitant]
     Active Substance: DOCUSATE SODIUM
  29. AMOXICILLIN. [Concomitant]
     Active Substance: AMOXICILLIN
  30. ATORVASTATIN [Concomitant]
     Active Substance: ATORVASTATIN
  31. VIREAD [Suspect]
     Active Substance: TENOFOVIR DISOPROXIL FUMARATE
     Indication: HIV INFECTION
     Dosage: UNK
     Route: 048
     Dates: start: 2001, end: 20170802
  32. CANDESARTAN. [Concomitant]
     Active Substance: CANDESARTAN
  33. DIALYVITE [Concomitant]
     Active Substance: ASCORBIC ACID\BIOTIN\CALCIUM PANTOTHENATE\COBALAMIN\FOLIC ACID\NIACINAMIDE\PYRIDOXINE HYDROCHLORIDE\RIBOFLAVIN\THIAMINE MONONITRATE
  34. ZITHROMAX [Concomitant]
     Active Substance: AZITHROMYCIN DIHYDRATE
  35. PHOSLO [Concomitant]
     Active Substance: CALCIUM ACETATE
  36. SENSIPAR [Concomitant]
     Active Substance: CINACALCET HYDROCHLORIDE
  37. VIREAD [Suspect]
     Active Substance: TENOFOVIR DISOPROXIL FUMARATE
     Dosage: UNK
     Route: 048
     Dates: start: 2013, end: 2015
  38. ATRIPLA [Suspect]
     Active Substance: EFAVIRENZ\EMTRICITABINE\TENOFOVIR DISOPROXIL FUMARATE
     Dosage: UNK
     Route: 048
     Dates: start: 2006, end: 2008
  39. ISENTRESS [Concomitant]
     Active Substance: RALTEGRAVIR POTASSIUM
  40. NORVIR [Concomitant]
     Active Substance: RITONAVIR
  41. TRIZIVIR [Concomitant]
     Active Substance: ABACAVIR SULFATE\LAMIVUDINE\ZIDOVUDINE
  42. ATOVAQUONE. [Concomitant]
     Active Substance: ATOVAQUONE
  43. AVLOSULFON [Concomitant]
     Active Substance: DAPSONE
  44. AZITHROMYCIN ANHYDROUS. [Concomitant]
     Active Substance: AZITHROMYCIN ANHYDROUS
  45. ATRIPLA [Suspect]
     Active Substance: EFAVIRENZ\EMTRICITABINE\TENOFOVIR DISOPROXIL FUMARATE
     Indication: HIV INFECTION
     Dosage: UNK
     Route: 048
     Dates: start: 2001, end: 20101007
  46. TRUVADA [Suspect]
     Active Substance: EMTRICITABINE\TENOFOVIR DISOPROXIL FUMARATE
     Indication: HIV INFECTION
     Route: 048
  47. CALCITRIOL. [Concomitant]
     Active Substance: CALCITRIOL
  48. DAPSONE. [Concomitant]
     Active Substance: DAPSONE
  49. SODIUM BICARBONATE. [Concomitant]
     Active Substance: SODIUM BICARBONATE
  50. VELPHORO [Concomitant]
     Active Substance: SUCROFERRIC OXYHYDROXIDE
  51. VITAMIN D2 [Concomitant]
     Active Substance: ERGOCALCIFEROL
  52. TUMS ULTRA [Concomitant]
     Active Substance: CALCIUM CARBONATE
  53. CALCIUM ACETATE. [Concomitant]
     Active Substance: CALCIUM ACETATE

REACTIONS (10)
  - Pain [Not Recovered/Not Resolved]
  - Emotional distress [Not Recovered/Not Resolved]
  - Anxiety [Recovered/Resolved]
  - End stage renal disease [Not Recovered/Not Resolved]
  - Depression [Recovered/Resolved]
  - Renal failure [Not Recovered/Not Resolved]
  - Anhedonia [Not Recovered/Not Resolved]
  - Acute kidney injury [Not Recovered/Not Resolved]
  - Economic problem [Not Recovered/Not Resolved]
  - Chronic kidney disease [Not Recovered/Not Resolved]

NARRATIVE: CASE EVENT DATE: 20101014
